FAERS Safety Report 11167932 (Version 1)
Quarter: 2015Q2

REPORT INFORMATION
  Report Type: Spontaneous
  Country: US (occurrence: US)
  Receive Date: 20150605
  Receipt Date: 20150605
  Transmission Date: 20150821
  Serious: Yes (Death)
  Sender: FDA-Public Use
  Company Number: US-PFIZER INC-2015185081

PATIENT
  Age: 52 Year
  Sex: Male

DRUGS (3)
  1. CLINDAMYCIN PHOSPHATE. [Suspect]
     Active Substance: CLINDAMYCIN PHOSPHATE
     Dosage: 600 MG EVERY 8 HOURS
     Route: 042
  2. VANCOMYCIN [Suspect]
     Active Substance: VANCOMYCIN
     Dosage: 1.5 G, DAILY
     Route: 042
  3. PIPERACILLIN/TAZOBACTAM [Suspect]
     Active Substance: PIPERACILLIN SODIUM\TAZOBACTAM SODIUM
     Dosage: 2.25 G EVERY 6 HOURS
     Route: 042

REACTIONS (9)
  - Respiratory failure [None]
  - Ventricular tachycardia [None]
  - Liver injury [None]
  - Drug ineffective [Fatal]
  - Haemodynamic instability [None]
  - Multi-organ failure [None]
  - Hypotension [None]
  - Acute kidney injury [None]
  - Lethargy [None]
